FAERS Safety Report 20095987 (Version 1)
Quarter: 2021Q4

REPORT INFORMATION
  Report Type: Spontaneous
  Country: US (occurrence: None)
  Receive Date: 20211120
  Receipt Date: 20211120
  Transmission Date: 20220303
  Serious: Yes (Other)
  Sender: FDA-Public Use
  Company Number: None

PATIENT
  Age: 60 Year
  Sex: Female
  Weight: 83.25 kg

DRUGS (9)
  1. CASIRIVIMAB\IMDEVIMAB [Suspect]
     Active Substance: CASIRIVIMAB\IMDEVIMAB
     Indication: COVID-19
     Dosage: OTHER STRENGTH : MG/ML;?OTHER QUANTITY : 120 MG/ML;?OTHER FREQUENCY : ONCE BY IV;?OTHER ROUTE : IV D
     Route: 050
     Dates: start: 20211119, end: 20211119
  2. PREDNISONE [Concomitant]
     Active Substance: PREDNISONE
  3. VITAMIN C [Concomitant]
     Active Substance: ASCORBIC ACID
  4. VITAMIN D3 [Concomitant]
     Active Substance: CHOLECALCIFEROL
  5. ZINC [Concomitant]
     Active Substance: ZINC
  6. GABA [Concomitant]
     Active Substance: HOMEOPATHICS
  7. SLEEP BLEND [Concomitant]
  8. HYALURANIC ACID [Concomitant]
  9. CINAMON CAPS [Concomitant]

REACTIONS (5)
  - Dizziness [None]
  - Fatigue [None]
  - Pyrexia [None]
  - Palpitations [None]
  - Feeling abnormal [None]

NARRATIVE: CASE EVENT DATE: 20211119
